FAERS Safety Report 5046170-6 (Version None)
Quarter: 2006Q2

REPORT INFORMATION
  Report Type: 
  Country: None (occurrence: None)
  Receive Date: 20060601
  Receipt Date: 20060322
  Transmission Date: 20061013
  Serious: No
  Sender: FDA-Public Use
  Company Number: 2006-BP-03233BP

PATIENT
  Age: 34 Year
  Sex: Male

DRUGS (1)
  1. SPIRIVA [Suspect]
     Dosage: 18 MCG (18 MCG,ONE PUFF),IH
     Dates: start: 20060317, end: 20060321

REACTIONS (1)
  - HEADACHE [None]
